FAERS Safety Report 16197898 (Version 1)
Quarter: 2019Q2

REPORT INFORMATION
  Report Type: Spontaneous
  Country: US (occurrence: US)
  Receive Date: 20190415
  Receipt Date: 20190415
  Transmission Date: 20190711
  Serious: No
  Sender: FDA-Public Use
  Company Number: US-PFIZER INC-2019151959

PATIENT
  Age: 51 Year
  Sex: Female

DRUGS (1)
  1. XELJANZ [Suspect]
     Active Substance: TOFACITINIB CITRATE
     Dosage: UNK
     Dates: start: 201811

REACTIONS (5)
  - Product use in unapproved indication [Unknown]
  - Nausea [Unknown]
  - Drug hypersensitivity [Unknown]
  - Headache [Unknown]
  - Gastrointestinal disorder [Unknown]
